FAERS Safety Report 17982626 (Version 1)
Quarter: 2020Q3

REPORT INFORMATION
  Report Type: Spontaneous
  Country: US (occurrence: US)
  Receive Date: 20200703
  Receipt Date: 20200703
  Transmission Date: 20201103
  Serious: Yes (Other)
  Sender: FDA-Public Use
  Company Number: None

PATIENT
  Age: 43 Year
  Sex: Female
  Weight: 58.95 kg

DRUGS (10)
  1. TOPAMAX [Concomitant]
     Active Substance: TOPIRAMATE
  2. CYMBALTA [Concomitant]
     Active Substance: DULOXETINE HYDROCHLORIDE
  3. PROTONIX [Concomitant]
     Active Substance: PANTOPRAZOLE SODIUM
  4. RELPAX [Concomitant]
     Active Substance: ELETRIPTAN HYDROBROMIDE
  5. VITAMIN D [Concomitant]
     Active Substance: VITAMIN D NOS
  6. PROMACTA [Suspect]
     Active Substance: ELTROMBOPAG OLAMINE
     Indication: THROMBOCYTOPENIA
     Route: 048
     Dates: start: 20200317
  7. CLONAZEPAM. [Concomitant]
     Active Substance: CLONAZEPAM
  8. MODAFINIL. [Concomitant]
     Active Substance: MODAFINIL
  9. PRENATAL/IRON [Concomitant]
  10. ZYRTEC [Concomitant]
     Active Substance: CETIRIZINE HYDROCHLORIDE

REACTIONS (1)
  - Musculoskeletal pain [None]

NARRATIVE: CASE EVENT DATE: 20200703
